FAERS Safety Report 16894069 (Version 1)
Quarter: 2019Q4

REPORT INFORMATION
  Report Type: Report from Study
  Country: DE (occurrence: DE)
  Receive Date: 20191008
  Receipt Date: 20191008
  Transmission Date: 20200122
  Serious: Yes (Other)
  Sender: FDA-Public Use
  Company Number: DE-ROCHE-2426994

PATIENT

DRUGS (1)
  1. RITUXIMAB. [Suspect]
     Active Substance: RITUXIMAB
     Indication: B-CELL LYMPHOMA
     Route: 041

REACTIONS (17)
  - Anaemia [Unknown]
  - Hyperglycaemia [Unknown]
  - Coagulopathy [Unknown]
  - Sepsis [Unknown]
  - Chills [Unknown]
  - Skin reaction [Unknown]
  - Pharyngeal oedema [Unknown]
  - Venous thrombosis [Unknown]
  - Syncope [Unknown]
  - Photosensitivity reaction [Unknown]
  - Granulocytopenia [Unknown]
  - Pyrexia [Unknown]
  - Tumour lysis syndrome [Unknown]
  - Lymphopenia [Unknown]
  - Thrombocytopenia [Unknown]
  - Dyspnoea [Unknown]
  - Cardiac failure [Unknown]
